FAERS Safety Report 19438044 (Version 1)
Quarter: 2021Q2

REPORT INFORMATION
  Report Type: Other
  Country: GB (occurrence: GB)
  Receive Date: 20210619
  Receipt Date: 20210619
  Transmission Date: 20210717
  Serious: Yes (Hospitalization)
  Sender: FDA-Public Use
  Company Number: GB-ASPEN-GLO2021GB004148

PATIENT

DRUGS (1)
  1. DEXAMETHASONE. [Suspect]
     Active Substance: DEXAMETHASONE
     Indication: CORONAVIRUS INFECTION
     Route: 065

REACTIONS (5)
  - Off label use [Unknown]
  - Hypomania [Unknown]
  - Flight of ideas [Unknown]
  - Anosognosia [Unknown]
  - Delusion [Unknown]

NARRATIVE: CASE EVENT DATE: 20201224
